FAERS Safety Report 6006394-8 (Version None)
Quarter: 2008Q4

REPORT INFORMATION
  Report Type: 
  Country: None (occurrence: None)
  Receive Date: 20081215
  Receipt Date: 20081201
  Transmission Date: 20090506
  Serious: Yes (Hospitalization, Other)
  Sender: FDA-Public Use
  Company Number: 2008AL012080

PATIENT
  Age: 33 Year
  Sex: Female

DRUGS (2)
  1. IRINOTECAN HYDROCHLORIDE [Suspect]
     Indication: CERVIX CARCINOMA
     Dosage: 730 MG; IV
     Route: 042
  2. MITOMYCIN [Concomitant]

REACTIONS (1)
  - OVARIAN FAILURE [None]
